FAERS Safety Report 6511697-4 (Version None)
Quarter: 2009Q4

REPORT INFORMATION
  Report Type: 
  Country: None (occurrence: None)
  Receive Date: 20091222
  Receipt Date: 20090409
  Transmission Date: 20100525
  Serious: No
  Sender: FDA-Public Use
  Company Number: US-ASTRAZENECA-2009UW08993

PATIENT
  Age: 68 Year
  Sex: Male
  Weight: 68 kg

DRUGS (3)
  1. CRESTOR [Suspect]
     Route: 048
  2. AMBIEN [Concomitant]
  3. LIBRIUM [Concomitant]

REACTIONS (5)
  - ASTHENIA [None]
  - FATIGUE [None]
  - INSOMNIA [None]
  - MUSCLE DISORDER [None]
  - WEIGHT DECREASED [None]
